FAERS Safety Report 6373051-8 (Version None)
Quarter: 2009Q3

REPORT INFORMATION
  Report Type: 
  Country: None (occurrence: None)
  Receive Date: 20090924
  Receipt Date: 20090209
  Transmission Date: 20100115
  Serious: Yes (Other)
  Sender: FDA-Public Use
  Company Number: US-ASTRAZENECA-2009UW03702

PATIENT
  Sex: Male

DRUGS (5)
  1. SEROQUEL [Suspect]
     Route: 048
  2. VALIUM [Concomitant]
  3. MORPHINE [Concomitant]
  4. LORETAB [Concomitant]
  5. GEODON [Concomitant]

REACTIONS (1)
  - SUICIDAL IDEATION [None]
